FAERS Safety Report 5557437-7 (Version None)
Quarter: 2007Q4

REPORT INFORMATION
  Report Type: 
  Country: None (occurrence: None)
  Receive Date: 20071211
  Receipt Date: 20071211
  Transmission Date: 20080405
  Serious: Yes (Other)
  Sender: FDA-Public Use
  Company Number: GXKR2007CA10292

PATIENT
  Age: 66 Year
  Sex: Male

DRUGS (10)
  1. HYDRALAZINE (NGX) (HYDRALAZINE) [Suspect]
  2. METOPROLOL TARTRATE [Concomitant]
  3. FLUVASTATIN [Concomitant]
  4. ZOPICLONE (ZOPICLONE) [Concomitant]
  5. ACETYLSALICYLIC ACID SRT [Concomitant]
  6. GLYCERYL TRINITRATE (GLYCERYL TRINITRATE) [Concomitant]
  7. ISOSORBIDE DINITRATE [Concomitant]
  8. FUROSEMIDE [Concomitant]
  9. ASCORBIC ACID [Concomitant]
  10. MULTIVITAMINS (ASCORBIC ACID, ERGOCALCIFEROL, FOLIC ACID, NCOTINAMIDE, [Concomitant]

REACTIONS (5)
  - INTERNATIONAL NORMALISED RATIO DECREASED [None]
  - LUPUS VASCULITIS [None]
  - PROTHROMBIN TIME PROLONGED [None]
  - PULMONARY HAEMORRHAGE [None]
  - PULMONARY VASCULITIS [None]
